FAERS Safety Report 7137091-3 (Version None)
Quarter: 2010Q4

REPORT INFORMATION
  Report Type: 
  Country: None (occurrence: None)
  Receive Date: 20101119
  Receipt Date: 20101104
  Transmission Date: 20110411
  Serious: Yes (Hospitalization, Other)
  Sender: FDA-Public Use
  Company Number: DSJ-2010-19965

PATIENT
  Age: 61 Year
  Sex: Male

DRUGS (5)
  1. BENICAR HCT [Suspect]
     Indication: HYPERTENSION
     Dosage: 40/25 MG (1 IN 1 D), PER ORAL; 20.12.5 MG (1 IN 1 D), PER ORAL
     Route: 048
     Dates: start: 20071108, end: 20080701
  2. BENICAR HCT [Suspect]
     Indication: HYPERTENSION
     Dosage: 40/25 MG (1 IN 1 D), PER ORAL; 20.12.5 MG (1 IN 1 D), PER ORAL
     Route: 048
     Dates: start: 20080701
  3. ACETYLSALICYLIC ACID [Concomitant]
  4. METFORMIN [Concomitant]
  5. GLICAZIDE [Concomitant]

REACTIONS (2)
  - BLOOD GLUCOSE INCREASED [None]
  - POLLAKIURIA [None]
